FAERS Safety Report 6720606-4 (Version None)
Quarter: 2010Q2

REPORT INFORMATION
  Report Type: 
  Country: None (occurrence: None)
  Receive Date: 20100510
  Receipt Date: 20100429
  Transmission Date: 20101027
  Serious: Yes (Other)
  Sender: FDA-Public Use
  Company Number: 2010-1309

PATIENT
  Age: 12 Year
  Sex: Male
  Weight: 35.5 kg

DRUGS (1)
  1. INCRELEX [Suspect]
     Indication: BODY HEIGHT BELOW NORMAL
     Dosage: 2.4 MG (1.2 MG, 2 IN 1 D), SUBCUTANEOUS
     Route: 058
     Dates: start: 20070312

REACTIONS (6)
  - ERYTHEMA [None]
  - INDURATION [None]
  - PAIN [None]
  - PRURITUS [None]
  - SKIN REACTION [None]
  - SWELLING [None]
